FAERS Safety Report 25575596 (Version 1)
Quarter: 2025Q3

REPORT INFORMATION
  Report Type: Spontaneous
  Country: US (occurrence: US)
  Receive Date: 20250718
  Receipt Date: 20250718
  Transmission Date: 20251021
  Serious: No
  Sender: BRISTOL-MYERS SQUIBB COMPANY
  Company Number: US-BRISTOL-MYERS SQUIBB COMPANY-2025-101006

PATIENT
  Age: 33 Year
  Sex: Male

DRUGS (4)
  1. COBENFY [Suspect]
     Active Substance: TROSPIUM CHLORIDE\XANOMELINE
     Indication: Schizophrenia
     Dosage: DOSE : 100/25 MG
  2. PROPRANOLOL [Concomitant]
     Active Substance: PROPRANOLOL HYDROCHLORIDE
     Indication: Anxiety
  3. XANOMELINE [Concomitant]
     Active Substance: XANOMELINE
     Indication: Anxiety
  4. TROSPIUM [Concomitant]
     Active Substance: TROSPIUM
     Indication: Anxiety

REACTIONS (3)
  - Hyperhidrosis [Unknown]
  - Blood pressure increased [Unknown]
  - Off label use [Unknown]
